FAERS Safety Report 10333159 (Version 1)
Quarter: 2014Q3

REPORT INFORMATION
  Report Type: Spontaneous
  Country: US (occurrence: US)
  Receive Date: 20140722
  Receipt Date: 20140722
  Transmission Date: 20150326
  Serious: No
  Sender: FDA-Public Use
  Company Number: US-SA-2014SA055936

PATIENT
  Sex: Female

DRUGS (1)
  1. AMBIEN CR [Suspect]
     Active Substance: ZOLPIDEM TARTRATE
     Indication: INSOMNIA
     Dosage: FREQUENCT- AT NIGHT
     Route: 048

REACTIONS (5)
  - Drug withdrawal syndrome [Unknown]
  - Throat tightness [Unknown]
  - Drug effect incomplete [Unknown]
  - Extra dose administered [Unknown]
  - Dyspnoea [Unknown]
